FAERS Safety Report 4982409-0 (Version None)
Quarter: 2006Q1

REPORT INFORMATION
  Report Type: 
  Country: None (occurrence: None)
  Receive Date: 20060227
  Receipt Date: 20050929
  Transmission Date: 20060701
  Serious: Yes (Life-Threatening, Hospitalization, Disabling, Other)
  Sender: FDA-Public Use
  Company Number: WAES 0510USA00442

PATIENT
  Age: 50 Year
  Sex: Male

DRUGS (2)
  1. ZOCOR [Suspect]
     Indication: LIPIDS INCREASED
     Dosage: 80 MG/PO
     Route: 048
     Dates: end: 20050901
  2. [THERAPY UNSPECIFIED] [Concomitant]

REACTIONS (3)
  - BLOOD POTASSIUM ABNORMAL [None]
  - LABORATORY TEST ABNORMAL [None]
  - RHABDOMYOLYSIS [None]
